FAERS Safety Report 4823296-0 (Version None)
Quarter: 2005Q4

REPORT INFORMATION
  Report Type: 
  Country: None (occurrence: None)
  Receive Date: 20051104
  Receipt Date: 20051014
  Transmission Date: 20060501
  Serious: Yes (Hospitalization, Other)
  Sender: FDA-Public Use
  Company Number: 2005099185

PATIENT
  Age: 50 Year
  Sex: Male
  Weight: 86.637 kg

DRUGS (3)
  1. LIPITOR [Suspect]
     Indication: HYPERLIPIDAEMIA
     Dosage: 20 MG 920 MG, 1 IN 1 D), ORAL
     Route: 048
     Dates: start: 20020615, end: 20050714
  2. VIAGRA [Concomitant]
  3. CIALIS [Concomitant]

REACTIONS (17)
  - ARTHRALGIA [None]
  - BACK PAIN [None]
  - BLOOD POTASSIUM INCREASED [None]
  - CHEST PAIN [None]
  - CONDITION AGGRAVATED [None]
  - CORONARY ARTERY DISEASE [None]
  - EPICONDYLITIS [None]
  - ERYTHEMA [None]
  - HEADACHE [None]
  - HOT FLUSH [None]
  - HYPERHIDROSIS [None]
  - INTERVERTEBRAL DISC DISORDER [None]
  - JOINT SWELLING [None]
  - MYALGIA [None]
  - NECK PAIN [None]
  - PAIN [None]
  - SHOULDER PAIN [None]
